FAERS Safety Report 11785114 (Version 1)
Quarter: 2015Q4

REPORT INFORMATION
  Report Type: Spontaneous
  Country: US (occurrence: US)
  Receive Date: 20151130
  Receipt Date: 20151130
  Transmission Date: 20160305
  Serious: Yes (Other)
  Sender: FDA-Public Use
  Company Number: US-DRREDDYS-USA/USA/15/0054182

PATIENT
  Age: 51 Year
  Sex: Male

DRUGS (2)
  1. DOCETAXEL. [Suspect]
     Active Substance: DOCETAXEL
     Indication: FOLLICULAR DENDRITIC CELL SARCOMA
     Route: 065
  2. GEMCITABINE [Suspect]
     Active Substance: GEMCITABINE\GEMCITABINE HYDROCHLORIDE
     Indication: FOLLICULAR DENDRITIC CELL SARCOMA
     Route: 065

REACTIONS (4)
  - Oedema peripheral [Recovered/Resolved]
  - Therapy responder [Unknown]
  - Pleural effusion [Recovered/Resolved]
  - Off label use [Unknown]
